FAERS Safety Report 4679390-0 (Version None)
Quarter: 2005Q2

REPORT INFORMATION
  Report Type: 
  Country: None (occurrence: None)
  Receive Date: 20050602
  Receipt Date: 20050524
  Transmission Date: 20051028
  Serious: Yes (Death, Other)
  Sender: FDA-Public Use
  Company Number: HCM-0043

PATIENT
  Age: 52 Year
  Sex: Male

DRUGS (10)
  1. HYCAMTIN [Suspect]
     Dosage: 1.1MG PER DAY
     Route: 042
     Dates: start: 20031105, end: 20040325
  2. AMLODIPINE BESYLATE [Concomitant]
     Dosage: 5MG PER DAY
     Route: 048
     Dates: start: 20031105, end: 20040421
  3. OMEPRAZOLE [Concomitant]
     Dosage: 20MG PER DAY
     Route: 048
     Dates: start: 20031105, end: 20040421
  4. BETAMETHASONE [Concomitant]
     Dosage: .5MG PER DAY
     Route: 048
     Dates: start: 20031105, end: 20040421
  5. SODIUM VALPROATE [Concomitant]
     Dosage: 200MG PER DAY
     Route: 048
     Dates: start: 20031105, end: 20040421
  6. DISTIGMINE BROMIDE [Concomitant]
     Dosage: 10MG PER DAY
     Route: 048
     Dates: start: 20031105, end: 20040421
  7. NAFTOPIDIL [Concomitant]
     Dosage: 60MG PER DAY
     Route: 048
     Dates: start: 20031105, end: 20040421
  8. MAGNESIUM OXIDE [Concomitant]
     Dosage: 1.5G PER DAY
     Route: 048
     Dates: start: 20031105, end: 20040421
  9. MORPHINE SULFATE [Concomitant]
     Route: 048
     Dates: start: 20040221, end: 20040420
  10. MORPHINE SULFATE [Concomitant]
     Dosage: 120MG PER DAY
     Route: 048
     Dates: start: 20040303, end: 20040412

REACTIONS (20)
  - ALANINE AMINOTRANSFERASE INCREASED [None]
  - ANAEMIA [None]
  - ASPARTATE AMINOTRANSFERASE INCREASED [None]
  - BLOOD CHLORIDE DECREASED [None]
  - BLOOD ELECTROLYTES ABNORMAL [None]
  - BLOOD LACTATE DEHYDROGENASE INCREASED [None]
  - BLOOD SODIUM DECREASED [None]
  - BLOOD URINE PRESENT [None]
  - BONE NEOPLASM MALIGNANT [None]
  - BRAIN CANCER METASTATIC [None]
  - HAEMATOCRIT DECREASED [None]
  - HAEMOGLOBIN DECREASED [None]
  - HEPATIC CANCER METASTATIC [None]
  - HYPOPROTEINAEMIA [None]
  - LIVER DISORDER [None]
  - NEUTROPHIL COUNT INCREASED [None]
  - PLATELET COUNT INCREASED [None]
  - PROTEIN TOTAL DECREASED [None]
  - RED BLOOD CELL COUNT DECREASED [None]
  - SMALL CELL LUNG CANCER STAGE UNSPECIFIED [None]
